FAERS Safety Report 25904835 (Version 3)
Quarter: 2025Q4

REPORT INFORMATION
  Report Type: Report from Study
  Country: US (occurrence: US)
  Receive Date: 20251010
  Receipt Date: 20251014
  Transmission Date: 20260117
  Serious: Yes (Hospitalization)
  Sender: ABBVIE
  Company Number: US-ABBVIE-6494523

PATIENT
  Age: 79 Year
  Sex: Female

DRUGS (12)
  1. VENCLEXTA [Suspect]
     Active Substance: VENETOCLAX
     Indication: B-cell small lymphocytic lymphoma
     Dosage: 10MG TABS BY MOUTH EVERY DAY ON WEEK 1?LAST ADMIN DATE AUG 2025
     Route: 048
     Dates: start: 20250802
  2. VENCLEXTA [Suspect]
     Active Substance: VENETOCLAX
     Indication: B-cell small lymphocytic lymphoma
     Dosage: 50MG TABS BY MOUTH EVERY DAY ON WEEK 2
     Route: 048
     Dates: start: 202508, end: 202508
  3. VENCLEXTA [Suspect]
     Active Substance: VENETOCLAX
     Indication: B-cell small lymphocytic lymphoma
     Dosage: 100 MG TABS BY MOUTH EVERY DAY ON WEEK 3
     Route: 048
     Dates: start: 202508, end: 202508
  4. VENCLEXTA [Suspect]
     Active Substance: VENETOCLAX
     Indication: B-cell small lymphocytic lymphoma
     Dosage: 200 MG TABS BY MOUTH EVERY DAY ON WEEK 4
     Route: 048
     Dates: start: 202508, end: 202508
  5. VENCLEXTA [Suspect]
     Active Substance: VENETOCLAX
     Indication: B-cell small lymphocytic lymphoma
     Dosage: 400 MG TABS BY MOUTH EVERY DAY ON WEEK 5?START ON DAY 22 OF CYCLE
     Route: 048
     Dates: start: 202509
  6. PRAVASTATIN [Concomitant]
     Active Substance: PRAVASTATIN
     Indication: Product used for unknown indication
     Dates: start: 20210111
  7. ALENDRONATE [Concomitant]
     Active Substance: ALENDRONATE SODIUM
     Indication: Product used for unknown indication
     Dosage: IN THE MORNING WITH A GLASS OF WATER, 30 MINUTES BEFORE A MEAL
     Route: 048
     Dates: start: 20210310
  8. CALCIUM [Concomitant]
     Active Substance: CALCIUM
     Indication: Product used for unknown indication
     Dates: start: 20250407
  9. VITAMIN D3 [Concomitant]
     Active Substance: CHOLECALCIFEROL
     Indication: Product used for unknown indication
     Dates: start: 20250407
  10. CLARITHROMYCIN [Concomitant]
     Active Substance: CLARITHROMYCIN
     Indication: Product used for unknown indication
     Dates: start: 20070802
  11. FLUTICASONE PROPIONATE [Concomitant]
     Active Substance: FLUTICASONE PROPIONATE
     Indication: Product used for unknown indication
     Dosage: 2 SPRAY IN EACH NOSTRIL
     Dates: start: 20230515
  12. METOPROLOL SUCCINATE [Concomitant]
     Active Substance: METOPROLOL SUCCINATE
     Indication: Product used for unknown indication
     Route: 048
     Dates: start: 20250414

REACTIONS (4)
  - Gastric haemorrhage [Unknown]
  - Mass [Recovering/Resolving]
  - Off label use [Unknown]
  - White blood cell count increased [Unknown]

NARRATIVE: CASE EVENT DATE: 20250101
